FAERS Safety Report 10652722 (Version 4)
Quarter: 2015Q1

REPORT INFORMATION
  Report Type: Report from Study
  Country: FR (occurrence: FR)
  Receive Date: 20141215
  Receipt Date: 20150313
  Transmission Date: 20150720
  Serious: Yes (Hospitalization)
  Sender: FDA-Public Use
  Company Number: FR-CELGENE-FRA-2014113009

PATIENT
  Age: 64 Year
  Sex: Male
  Weight: 86 kg

DRUGS (5)
  1. REVLIMID [Suspect]
     Active Substance: LENALIDOMIDE
     Route: 048
     Dates: end: 20141130
  2. GA101 [Suspect]
     Active Substance: OBINUTUZUMAB
     Route: 065
     Dates: start: 20141112, end: 20141112
  3. REVLIMID [Suspect]
     Active Substance: LENALIDOMIDE
     Indication: B-CELL LYMPHOMA
     Route: 048
     Dates: start: 20141029, end: 20141104
  4. GA101 [Suspect]
     Active Substance: OBINUTUZUMAB
     Indication: B-CELL LYMPHOMA
     Route: 065
     Dates: start: 20141105, end: 20141105
  5. ACETYLSALICYLIC ACID [Concomitant]
     Active Substance: ASPIRIN
     Indication: THROMBOSIS PROPHYLAXIS
     Route: 065
     Dates: start: 20141019

REACTIONS (3)
  - Dizziness [Recovering/Resolving]
  - Infusion related reaction [Recovered/Resolved]
  - Nystagmus [Recovering/Resolving]

NARRATIVE: CASE EVENT DATE: 20141105
